FAERS Safety Report 15781111 (Version 2)
Quarter: 2021Q3

REPORT INFORMATION
  Report Type: Report from Study
  Country: EG (occurrence: EG)
  Receive Date: 20190102
  Receipt Date: 20210928
  Transmission Date: 20211014
  Serious: Yes (Hospitalization)
  Sender: FDA-Public Use
  Company Number: EG-SA-2018SA109440

PATIENT
  Age: 68 Year
  Sex: Female

DRUGS (10)
  1. INSULIN GLARGINE [Suspect]
     Active Substance: INSULIN GLARGINE
     Indication: TYPE 2 DIABETES MELLITUS
     Dosage: 30 IU,QD
     Route: 051
     Dates: start: 20171224, end: 201804
  2. PLAVIX [Concomitant]
     Active Substance: CLOPIDOGREL BISULFATE
     Indication: HYPERTENSION
     Dosage: UNK UNK,UNK
     Route: 065
  3. INSULIN, ISOPHANE INSULIN [Concomitant]
     Dosage: 40 IU, QD
  4. CRESTOR [Concomitant]
     Active Substance: ROSUVASTATIN CALCIUM
     Indication: HYPERTENSION
     Dosage: UNK UNK,UNK
     Route: 065
  5. INSULIN GLARGINE [Suspect]
     Active Substance: INSULIN GLARGINE
     Dosage: 30 IU,QD
     Route: 051
     Dates: start: 20171224
  6. INSULIN, ISOPHANE INSULIN [Concomitant]
     Dosage: 20 UNK
  7. GLYCERYL TRINITRATE [Concomitant]
     Active Substance: NITROGLYCERIN
     Indication: HYPERTENSION
     Dosage: UNK UNK,UNK
     Route: 065
  8. INSULIN, ISOPHANE INSULIN [Concomitant]
     Dosage: UNK UNK,UNK
     Route: 065
     Dates: end: 20180413
  9. ATOR [Concomitant]
     Active Substance: ATORVASTATIN CALCIUM
     Indication: HYPERTENSION
     Dosage: UNK UNK,UNK
     Route: 065
  10. ACTRAPID [Concomitant]
     Active Substance: INSULIN HUMAN
     Dosage: 10 IU, QD

REACTIONS (4)
  - Blood glucose increased [Unknown]
  - Fluid retention [Not Recovered/Not Resolved]
  - Hyperglycaemia [Not Recovered/Not Resolved]
  - Cardiovascular disorder [Recovering/Resolving]

NARRATIVE: CASE EVENT DATE: 20180321
